FAERS Safety Report 19278385 (Version 1)
Quarter: 2021Q2

REPORT INFORMATION
  Report Type: Spontaneous
  Country: US (occurrence: US)
  Receive Date: 20210520
  Receipt Date: 20210520
  Transmission Date: 20210717
  Serious: No
  Sender: FDA-Public Use
  Company Number: None

PATIENT
  Age: 65 Year
  Sex: Male

DRUGS (1)
  1. WARFARIN (WARFARIN NA (EXELAN) 5MG TAB) [Suspect]
     Active Substance: WARFARIN SODIUM
     Indication: ATRIAL FIBRILLATION
     Route: 048

REACTIONS (15)
  - Orthopnoea [None]
  - Hypotension [None]
  - International normalised ratio increased [None]
  - Dyspnoea [None]
  - Staphylococcus test positive [None]
  - Coagulopathy [None]
  - Mental status changes [None]
  - Thrombocytopenia [None]
  - Acute kidney injury [None]
  - Cardiac failure acute [None]
  - Ischaemic hepatitis [None]
  - Ileus [None]
  - Ischaemia [None]
  - Weight increased [None]
  - Gastric haemorrhage [None]

NARRATIVE: CASE EVENT DATE: 20210330
